FAERS Safety Report 5683348-2 (Version None)
Quarter: 2008Q1

REPORT INFORMATION
  Report Type: 
  Country: None (occurrence: None)
  Receive Date: 20080326
  Receipt Date: 20080312
  Transmission Date: 20080703
  Serious: Yes (Hospitalization)
  Sender: FDA-Public Use
  Company Number: A-US2007-18508

PATIENT
  Age: 44 Year
  Sex: Female

DRUGS (10)
  1. TRACLEER [Suspect]
     Indication: PULMONARY HYPERTENSION
     Dosage: 125 MG, BID, ORAL, 62.5 MG, BID, ORAL
     Route: 048
     Dates: start: 20060807, end: 20070101
  2. TRACLEER [Suspect]
     Indication: PULMONARY HYPERTENSION
     Dosage: 125 MG, BID, ORAL, 62.5 MG, BID, ORAL
     Route: 048
     Dates: end: 20071030
  3. CYTOXAN [Suspect]
     Indication: SYSTEMIC SCLEROSIS
  4. PREDNISONE TAB [Concomitant]
  5. LASIX [Concomitant]
  6. POTASSIUM (POTASSIUM) [Concomitant]
  7. SILDENAFIL CITRATE [Concomitant]
  8. NORVASC [Concomitant]
  9. PREVACID [Concomitant]
  10. OSETROL (DIETHYLSTILBESTROL) [Concomitant]

REACTIONS (11)
  - ABDOMINAL PAIN [None]
  - ALANINE AMINOTRANSFERASE INCREASED [None]
  - ASPARTATE AMINOTRANSFERASE INCREASED [None]
  - BLOOD ALKALINE PHOSPHATASE INCREASED [None]
  - GASTROINTESTINAL HAEMORRHAGE [None]
  - JAUNDICE [None]
  - LIVER FUNCTION TEST ABNORMAL [None]
  - NAUSEA [None]
  - OESOPHAGEAL CANDIDIASIS [None]
  - SYSTEMIC SCLEROSIS [None]
  - VOMITING [None]
